FAERS Safety Report 9587639 (Version 1)
Quarter: 2013Q4

REPORT INFORMATION
  Report Type: Spontaneous
  Country: US (occurrence: US)
  Receive Date: 20131003
  Receipt Date: 20131003
  Transmission Date: 20140711
  Serious: Yes (Other)
  Sender: FDA-Public Use
  Company Number: US-COVIDIEN/TYCO HEALTHCARE/MALLINCKRODT-T201204251

PATIENT
  Age: 56 Year
  Sex: Female

DRUGS (11)
  1. EXALGO EXTENDED RELEASE [Suspect]
     Dosage: 16 MG QD, TOOK ONE
     Dates: start: 201211, end: 201211
  2. EXALGO EXTENDED RELEASE [Suspect]
     Dosage: 12 MG QD
     Dates: start: 201210
  3. HYDROCODONE BITARTRATE AND ACETAMINOPHEN [Concomitant]
     Dosage: 10/325 MG TID
  4. FEXOFENADINE [Concomitant]
     Indication: ANTIALLERGIC THERAPY
     Dosage: UNK
  5. BENADRYL                           /00000402/ [Concomitant]
     Dosage: UNK, Q AM
  6. PRAVASTATIN [Concomitant]
     Dosage: UNK
  7. DICLOFENAC [Concomitant]
     Dosage: 75 MG, BID
  8. DESPERAL [Concomitant]
     Indication: BLOOD PRESSURE
     Dosage: UNK
  9. PEPCID AC [Concomitant]
     Dosage: UNK
  10. BACLOFEN [Concomitant]
     Dosage: UNK
  11. ^INHALER^ [Concomitant]
     Dosage: UNK

REACTIONS (7)
  - Swollen tongue [Not Recovered/Not Resolved]
  - Hypersomnia [Unknown]
  - Myalgia [Unknown]
  - Fatigue [Unknown]
  - Diarrhoea [Not Recovered/Not Resolved]
  - Vomiting [Not Recovered/Not Resolved]
  - Nausea [Not Recovered/Not Resolved]
